FAERS Safety Report 11732866 (Version 1)
Quarter: 2015Q4

REPORT INFORMATION
  Report Type: Spontaneous
  Country: US (occurrence: US)
  Receive Date: 20151113
  Receipt Date: 20151113
  Transmission Date: 20160304
  Serious: Yes (Other)
  Sender: FDA-Public Use
  Company Number: US-ROCHE-1658912

PATIENT

DRUGS (2)
  1. HERCEPTIN [Suspect]
     Active Substance: TRASTUZUMAB
     Indication: BREAST CANCER METASTATIC
     Route: 065
  2. HERCEPTIN [Suspect]
     Active Substance: TRASTUZUMAB
     Indication: ADENOCARCINOMA

REACTIONS (5)
  - Systemic lupus erythematosus [Unknown]
  - Glomerular filtration rate decreased [Unknown]
  - Renal failure [Unknown]
  - Blood creatinine increased [Unknown]
  - Hypertension [Unknown]
